FAERS Safety Report 11306896 (Version 1)
Quarter: 2015Q3

REPORT INFORMATION
  Report Type: Spontaneous
  Country: US (occurrence: US)
  Receive Date: 20150723
  Receipt Date: 20150723
  Transmission Date: 20151125
  Serious: No
  Sender: FDA-Public Use
  Company Number: US-ASTELLAS-2015US017647

PATIENT
  Sex: Female

DRUGS (1)
  1. MYRBETRIQ [Suspect]
     Active Substance: MIRABEGRON
     Indication: URINARY INCONTINENCE
     Route: 065

REACTIONS (6)
  - Insomnia [Unknown]
  - Nocturia [Unknown]
  - Erythema [Unknown]
  - Blood pressure increased [Unknown]
  - Skin swelling [Unknown]
  - Pruritus [Unknown]
